FAERS Safety Report 20354831 (Version 1)
Quarter: 2022Q1

REPORT INFORMATION
  Report Type: Spontaneous
  Country: IT (occurrence: IT)
  Receive Date: 20220120
  Receipt Date: 20220120
  Transmission Date: 20220423
  Serious: Yes (Other)
  Sender: FDA-Public Use
  Company Number: IT-TAKEDA-2022TEU000143

PATIENT
  Sex: Male

DRUGS (2)
  1. LANSOPRAZOLE [Suspect]
     Active Substance: LANSOPRAZOLE
     Indication: Hiatus hernia
     Dosage: 15 MILLIGRAM
     Route: 065
  2. LANSOPRAZOLE [Suspect]
     Active Substance: LANSOPRAZOLE
     Indication: Gastrooesophageal reflux disease

REACTIONS (11)
  - Drug dependence [Unknown]
  - Arrhythmia [Unknown]
  - Erection increased [Unknown]
  - Chest pain [Unknown]
  - Tachycardia [Unknown]
  - Extrasystoles [Unknown]
  - Sleep apnoea syndrome [Unknown]
  - Fatigue [Unknown]
  - Dyspnoea [Unknown]
  - Chest discomfort [Unknown]
  - Insomnia [Unknown]
